FAERS Safety Report 20324516 (Version 7)
Quarter: 2022Q2

REPORT INFORMATION
  Report Type: Report from Study
  Country: JP (occurrence: None)
  Receive Date: 20220111
  Receipt Date: 20220428
  Transmission Date: 20220721
  Serious: Yes (Hospitalization)
  Sender: FDA-Public Use
  Company Number: JP-ROCHE-2997881

PATIENT
  Age: 62 Year
  Sex: Female
  Weight: 57 kg

DRUGS (17)
  1. ATEZOLIZUMAB [Suspect]
     Active Substance: ATEZOLIZUMAB
     Indication: Triple negative breast cancer
     Dosage: DATE OF MOST RECENT DOSE OF ATEZOLIZUMAB PRIOR TO AE AND SAE?ONSET 16/DEC/2021
     Route: 041
     Dates: start: 20210812
  2. PACLITAXEL [Suspect]
     Active Substance: PACLITAXEL
     Indication: Triple negative breast cancer
     Dosage: DATE OF MOST RECENT DOSE OF PACLITAXEL (127.12 MG) PRIOR TO AE ONSET  28/OCT/2021
     Route: 042
     Dates: start: 20210812
  3. DOXORUBICIN [Suspect]
     Active Substance: DOXORUBICIN
     Indication: Triple negative breast cancer
     Dosage: DATE OF MOST RECENT DOSE(95.34 MG) OF DOXORUBICIN PRIOR TO AE AND SAE ONSET 16/DEC/2021
     Route: 042
     Dates: start: 20211104
  4. CYCLOPHOSPHAMIDE [Suspect]
     Active Substance: CYCLOPHOSPHAMIDE
     Indication: Triple negative breast cancer
     Dosage: DATE OF MOST RECENT DOSE OF CYCLOPHOSPHAMIDE PRIOR TO AE AND SAE ONSET 16/DEC/2021
     Route: 042
     Dates: start: 20211104
  5. PEGFILGRASTIM [Suspect]
     Active Substance: PEGFILGRASTIM
     Indication: Triple negative breast cancer
     Dosage: CYCLE 4?VISIT 1
     Route: 058
     Dates: start: 20211106, end: 20211106
  6. PEGFILGRASTIM [Suspect]
     Active Substance: PEGFILGRASTIM
     Dosage: CYCLE 4?VISIT 2
     Route: 058
     Dates: start: 20211120, end: 20211120
  7. PEGFILGRASTIM [Suspect]
     Active Substance: PEGFILGRASTIM
     Dosage: CYCLE 5?VISIT 1
     Route: 058
     Dates: start: 20211204, end: 20211204
  8. PEGFILGRASTIM [Suspect]
     Active Substance: PEGFILGRASTIM
     Dosage: CYCLE 5?VISIT 2
     Route: 058
     Dates: start: 20211218, end: 20211218
  9. FLURBIPROFEN [Concomitant]
     Active Substance: FLURBIPROFEN
     Dates: start: 20220106, end: 20220106
  10. SULBACTAM SODIUM [Concomitant]
     Active Substance: SULBACTAM SODIUM
     Dates: start: 20220106, end: 20220111
  11. ACETAMINOPHEN [Concomitant]
     Active Substance: ACETAMINOPHEN
     Dates: start: 20220107, end: 20220107
  12. SOLULACT D [Concomitant]
     Dates: start: 20220106, end: 20220106
  13. POVIDONE-IODINE [Concomitant]
     Active Substance: POVIDONE-IODINE
     Dates: start: 20220106, end: 20220221
  14. BUCLADESINE SODIUM [Concomitant]
     Active Substance: BUCLADESINE SODIUM
     Dates: start: 20220221, end: 20220307
  15. GENTAMICIN SULFATE [Concomitant]
     Active Substance: GENTAMICIN SULFATE
     Dates: start: 20220307
  16. PETROLATUM [Concomitant]
     Active Substance: PETROLATUM
     Dates: start: 20220111
  17. LEVOFLOXACIN HEMIHYDRATE [Concomitant]
     Active Substance: LEVOFLOXACIN
     Dates: start: 20220204, end: 20220210

REACTIONS (1)
  - Necrotising fasciitis [Recovered/Resolved with Sequelae]

NARRATIVE: CASE EVENT DATE: 20220106
